FAERS Safety Report 21010387 (Version 1)
Quarter: 2022Q2

REPORT INFORMATION
  Report Type: Spontaneous
  Country: US (occurrence: None)
  Receive Date: 20220624
  Receipt Date: 20220624
  Transmission Date: 20220720
  Serious: No
  Sender: FDA-Public Use
  Company Number: None

PATIENT
  Sex: Female

DRUGS (1)
  1. RINVOQ [Suspect]
     Active Substance: UPADACITINIB
     Indication: Idiopathic urticaria
     Dosage: 15MG 1 TIME DAILY BY MOUTH
     Route: 048
     Dates: start: 20220425, end: 20220620

REACTIONS (2)
  - Epigastric discomfort [None]
  - Urticaria [None]
